FAERS Safety Report 16321199 (Version 2)
Quarter: 2019Q2

REPORT INFORMATION
  Report Type: Spontaneous
  Country: PL (occurrence: PL)
  Receive Date: 20190516
  Receipt Date: 20190529
  Transmission Date: 20190711
  Serious: Yes (Death, Other)
  Sender: FDA-Public Use
  Company Number: PL-PFIZER INC-2019204647

PATIENT
  Age: 52 Year
  Sex: Male

DRUGS (6)
  1. SPIRONOLACTONE. [Suspect]
     Active Substance: SPIRONOLACTONE
     Indication: PULMONARY HYPERTENSION
     Dosage: 100 MG, 1X/DAY
  2. REVATIO [Suspect]
     Active Substance: SILDENAFIL CITRATE
     Indication: PULMONARY HYPERTENSION
     Dosage: 20 MG, 3X/DAY
     Route: 048
  3. WARFARIN [Suspect]
     Active Substance: WARFARIN
     Indication: PULMONARY HYPERTENSION
     Dosage: INR RANGE: 2-3
  4. DIGOXIN. [Suspect]
     Active Substance: DIGOXIN
     Indication: PULMONARY HYPERTENSION
     Dosage: 0.1 MG, 1X/DAY
  5. FUROSEMIDE. [Suspect]
     Active Substance: FUROSEMIDE
     Indication: PULMONARY HYPERTENSION
     Dosage: 40 MG, DAILY
     Route: 048
  6. VENTAVIS [Suspect]
     Active Substance: ILOPROST
     Indication: PULMONARY HYPERTENSION
     Dosage: 6 ? 5 ?G
     Route: 048

REACTIONS (3)
  - Condition aggravated [Unknown]
  - Cardiac failure [Fatal]
  - Pneumonia [Fatal]
